FAERS Safety Report 23744230 (Version 1)
Quarter: 2024Q2

REPORT INFORMATION
  Report Type: Spontaneous
  Country: FR (occurrence: FR)
  Receive Date: 20240415
  Receipt Date: 20240415
  Transmission Date: 20240716
  Serious: Yes (Other)
  Sender: FDA-Public Use
  Company Number: FR-SUN PHARMACEUTICAL INDUSTRIES LTD-2024RR-442205

PATIENT
  Age: 71 Year
  Sex: Female

DRUGS (4)
  1. ATORVASTATIN [Suspect]
     Active Substance: ATORVASTATIN
     Indication: Medication error
     Dosage: 10 MILLIGRAM, IN TOTAL
     Route: 048
     Dates: start: 20230131, end: 20230131
  2. ARIPIPRAZOLE [Suspect]
     Active Substance: ARIPIPRAZOLE
     Indication: Medication error
     Dosage: 30 MILLIGRAM, IN TOTAL
     Route: 048
     Dates: start: 20230131, end: 20230131
  3. RISPERDAL [Suspect]
     Active Substance: RISPERIDONE
     Indication: Medication error
     Dosage: 0.5 MILLIGRAM, IN TOTAL
     Route: 048
     Dates: start: 20230131, end: 20230131
  4. DEPAKOTE [Suspect]
     Active Substance: DIVALPROEX SODIUM
     Indication: Medication error
     Dosage: 750 MILLIGRAM, IN TOTAL
     Route: 048
     Dates: start: 20230131, end: 20230131

REACTIONS (3)
  - Hypoxia [Recovered/Resolved]
  - Wrong patient received product [Recovered/Resolved]
  - Vomiting [Recovered/Resolved]

NARRATIVE: CASE EVENT DATE: 20230131
